FAERS Safety Report 10791956 (Version 1)
Quarter: 2015Q1

REPORT INFORMATION
  Report Type: Spontaneous
  Country: JP (occurrence: None)
  Receive Date: 20150211
  Receipt Date: 20150211
  Transmission Date: 20150721
  Serious: Yes (Congenital Anomaly)
  Sender: FDA-Public Use
  Company Number: 2015FE00165

PATIENT
  Sex: Male

DRUGS (1)
  1. MENOPUR [Suspect]
     Active Substance: FOLLICLE STIMULATING HORMONE BETA POLYPEPTIDE\LUTROPIN ALFA
     Indication: ASSISTED FERTILISATION

REACTIONS (5)
  - Premature baby [None]
  - Maternal drugs affecting foetus [None]
  - Oculoauriculovertebral dysplasia [None]
  - Caesarean section [None]
  - Foetal growth restriction [None]
